FAERS Safety Report 10487263 (Version 1)
Quarter: 2014Q3

REPORT INFORMATION
  Report Type: Spontaneous
  Country: US (occurrence: None)
  Receive Date: 20140908
  Receipt Date: 20140908
  Transmission Date: 20150326
  Serious: Yes (Hospitalization)
  Sender: FDA-Public Use
  Company Number: 404476

PATIENT
  Age: 62 Year
  Sex: Female
  Weight: 81.6 kg

DRUGS (4)
  1. VICTOZA [Suspect]
     Active Substance: LIRAGLUTIDE
     Indication: TYPE 2 DIABETES MELLITUS
     Dosage: UNK
     Route: 058
     Dates: start: 201301, end: 201312
  2. ANTIHYPERTENSIVES [Concomitant]
     Active Substance: UNSPECIFIED INGREDIENT
  3. ANALGESIC [Concomitant]
     Active Substance: UNSPECIFIED INGREDIENT
  4. TROLAMINE SALICYLATE. [Concomitant]
     Active Substance: TROLAMINE SALICYLATE

REACTIONS (2)
  - Pancreatitis relapsing [None]
  - Pancreatitis [None]

NARRATIVE: CASE EVENT DATE: 201312
